FAERS Safety Report 7381127-1 (Version None)
Quarter: 2011Q1

REPORT INFORMATION
  Report Type: 
  Country: None (occurrence: None)
  Receive Date: 20110329
  Receipt Date: 20101029
  Transmission Date: 20110831
  Serious: No
  Sender: FDA-Public Use
  Company Number: US-AMGEN-USASP2010002366

PATIENT
  Age: 66 Year
  Sex: Female

DRUGS (7)
  1. RECLAST [Concomitant]
     Dosage: UNK
     Dates: start: 20090801
  2. SENSIPAR [Suspect]
     Indication: HYPERPARATHYROIDISM SECONDARY
     Dosage: 30 MG, QD
     Dates: start: 20090402
  3. NEXIUM [Concomitant]
     Dosage: 20 MG, UNK
  4. MORTIN [Concomitant]
     Dosage: 10 UNK, UNK
  5. CELEXA [Concomitant]
     Dosage: 20 MG, UNK
  6. AMBIEN [Concomitant]
     Dosage: 10 MG, UNK
  7. SIMVASTATIN [Concomitant]
     Dosage: 20 MG, UNK

REACTIONS (2)
  - GLOSSODYNIA [None]
  - RASH [None]
